FAERS Safety Report 4388024-4 (Version None)
Quarter: 2004Q2

REPORT INFORMATION
  Report Type: 
  Country: None (occurrence: None)
  Receive Date: 20040607
  Receipt Date: 20040122
  Transmission Date: 20050107
  Serious: Yes (Disabling)
  Sender: FDA-Public Use
  Company Number: 211742

PATIENT
  Age: 13 Year
  Sex: Male
  Weight: 68 kg

DRUGS (3)
  1. ACCUTANE [Suspect]
     Indication: ACNE CYSTIC
     Dosage: 40 MG DAILY ORAL
     Route: 048
     Dates: start: 19990225
  2. PAXIL [Concomitant]
  3. ACNE MEDICATION (ACNE MEDICATION NOS) [Concomitant]

REACTIONS (9)
  - ACNE [None]
  - CONDITION AGGRAVATED [None]
  - DEPRESSION [None]
  - DISCOMFORT [None]
  - EMOTIONAL DISTRESS [None]
  - EXCESSIVE GRANULATION TISSUE [None]
  - GRANULOMA [None]
  - PAIN [None]
  - SCAR [None]
